FAERS Safety Report 6576244-X (Version None)
Quarter: 2010Q1

REPORT INFORMATION
  Report Type: 
  Country: None (occurrence: None)
  Receive Date: 20100210
  Receipt Date: 20100128
  Transmission Date: 20100710
  Serious: Yes (Disabling)
  Sender: FDA-Public Use
  Company Number: GB-RANBAXY-2010RR-30827

PATIENT
  Sex: Male

DRUGS (4)
  1. RAMIPRIL [Suspect]
     Indication: HYPERTENSION
     Dosage: 10 MG, QD
  2. ASPIRIN [Concomitant]
  3. NIFEDIPINE [Concomitant]
  4. SIMVASTATIN [Concomitant]

REACTIONS (1)
  - VIRAL INFECTION [None]
